FAERS Safety Report 20187642 (Version 2)
Quarter: 2022Q1

REPORT INFORMATION
  Report Type: Spontaneous
  Country: US (occurrence: US)
  Receive Date: 20211215
  Receipt Date: 20220121
  Transmission Date: 20220424
  Serious: No
  Sender: FDA-Public Use
  Company Number: US-PFIZER INC-202101587750

PATIENT
  Age: 91 Year
  Sex: Male
  Weight: 63.5 kg

DRUGS (3)
  1. ZOLOFT [Suspect]
     Active Substance: SERTRALINE HYDROCHLORIDE
     Dosage: 50 MG, 1X/DAY
  2. LUSTRAL [Suspect]
     Active Substance: SERTRALINE HYDROCHLORIDE
  3. LUSTRAL [Suspect]
     Active Substance: SERTRALINE HYDROCHLORIDE

REACTIONS (3)
  - Drug ineffective [Unknown]
  - Aggression [Unknown]
  - Screaming [Unknown]
